FAERS Safety Report 9460042 (Version 1)
Quarter: 2013Q3

REPORT INFORMATION
  Report Type: Spontaneous
  Country: US (occurrence: None)
  Receive Date: 20130814
  Receipt Date: 20130814
  Transmission Date: 20140515
  Serious: Yes (Other)
  Sender: FDA-Public Use
  Company Number: None

PATIENT
  Age: 34 Year
  Sex: Female
  Weight: 100.7 kg

DRUGS (12)
  1. BUTORPHANOL TARTRATE [Suspect]
     Indication: ANALGESIC THERAPY
     Dosage: STADOL2MG IV PUSH
     Route: 042
     Dates: start: 20130807
  2. COLACE [Concomitant]
  3. KETOROLAC [Concomitant]
  4. SIMETHICONE [Concomitant]
  5. APAP [Concomitant]
  6. BISICODYL [Concomitant]
  7. HYDROMORPHONE [Concomitant]
  8. IBUPROFEN [Concomitant]
  9. LANOIN [Concomitant]
  10. ZOFRAN [Concomitant]
  11. PERCOCET [Concomitant]
  12. OXYTOCIN/D5W [Concomitant]

REACTIONS (1)
  - Pruritus [None]
